FAERS Safety Report 4795728-8 (Version None)
Quarter: 2005Q4

REPORT INFORMATION
  Report Type: 
  Country: None (occurrence: None)
  Receive Date: 20051012
  Receipt Date: 20051003
  Transmission Date: 20060501
  Serious: Yes (Hospitalization, Other)
  Sender: FDA-Public Use
  Company Number: PHEH2005US10970

PATIENT
  Age: 46 Year
  Sex: Male

DRUGS (2)
  1. CLOZAPINE [Suspect]
     Indication: SCHIZOPHRENIA
     Route: 048
     Dates: start: 19900101, end: 20050801
  2. CLOZAPINE [Suspect]
     Dosage: 200MG QAM, 350MG QPM
     Route: 048
     Dates: start: 20050801

REACTIONS (5)
  - CAST APPLICATION [None]
  - FALL [None]
  - LEUKOCYTOSIS [None]
  - LOWER LIMB FRACTURE [None]
  - SCHIZOPHRENIA [None]
